FAERS Safety Report 8412331-9 (Version None)
Quarter: 2012Q2

REPORT INFORMATION
  Report Type: 
  Country: None (occurrence: None)
  Receive Date: 20120605
  Receipt Date: 20120515
  Transmission Date: 20120825
  Serious: No
  Sender: FDA-Public Use
  Company Number: US-AMGEN-USASP2012016072

PATIENT
  Age: 41 Year
  Sex: Female
  Weight: 52 kg

DRUGS (3)
  1. ENBREL [Suspect]
     Indication: SPONDYLITIS
     Dosage: 50 MG, QWK
     Route: 058
     Dates: start: 20120221, end: 20120327
  2. MEDROXYPROGESTERONE [Concomitant]
     Dosage: 10 MG, QD
     Route: 048
  3. LYRICA [Concomitant]
     Dosage: 100 MG, TID
     Route: 048

REACTIONS (5)
  - INJECTION SITE REACTION [None]
  - DRUG INEFFECTIVE [None]
  - INJECTION SITE ERYTHEMA [None]
  - INJECTION SITE SWELLING [None]
  - INJECTION SITE PRURITUS [None]
